FAERS Safety Report 10150256 (Version 1)
Quarter: 2014Q2

REPORT INFORMATION
  Report Type: Spontaneous
  Country: US (occurrence: None)
  Receive Date: 20140501
  Receipt Date: 20140501
  Transmission Date: 20141212
  Serious: Yes (Hospitalization)
  Sender: FDA-Public Use
  Company Number: None

PATIENT
  Age: 36 Year
  Sex: Female

DRUGS (9)
  1. HEPARIN [Suspect]
     Indication: THROMBOSIS PROPHYLAXIS
     Dosage: 5000 UNITS
     Route: 058
     Dates: start: 20130919, end: 20130928
  2. CHLORHEXADINE [Concomitant]
  3. PIPERACILLIN/TAZOBACTAM [Concomitant]
  4. SENNA [Concomitant]
  5. MANNITOL [Concomitant]
  6. POTASSIUM CHLORIDE [Concomitant]
  7. ONDANSETRON [Concomitant]
  8. IBUPROFEN [Concomitant]
  9. ACETAMINOPHEN-CODEINE [Concomitant]

REACTIONS (9)
  - Drug specific antibody present [None]
  - Carotid artery dissection [None]
  - Deep vein thrombosis [None]
  - Cerebral artery thrombosis [None]
  - Cerebral artery thrombosis [None]
  - VIIth nerve paralysis [None]
  - Muscular weakness [None]
  - Muscular weakness [None]
  - Mental status changes [None]
